FAERS Safety Report 16106562 (Version 2)
Quarter: 2019Q2

REPORT INFORMATION
  Report Type: Report from Study
  Country: US (occurrence: US)
  Receive Date: 20190322
  Receipt Date: 20190524
  Transmission Date: 20190711
  Serious: Yes (Life-Threatening, Hospitalization, Other)
  Sender: FDA-Public Use
  Company Number: US-ALEXION PHARMACEUTICALS INC.-A201904128

PATIENT
  Age: 29 Year
  Sex: Female
  Weight: 62.8 kg

DRUGS (2)
  1. STRENSIQ [Suspect]
     Active Substance: ASFOTASE ALFA
     Dosage: 126 MG, UNK
     Route: 058
     Dates: start: 20181105
  2. STRENSIQ [Suspect]
     Active Substance: ASFOTASE ALFA
     Indication: HYPOPHOSPHATASIA
     Dosage: UNK MG, UNK
     Route: 058

REACTIONS (8)
  - Seizure [Not Recovered/Not Resolved]
  - Influenza like illness [Unknown]
  - Emotional distress [Unknown]
  - Rash [Unknown]
  - Asthma [Unknown]
  - Pain [Unknown]
  - Chest discomfort [Unknown]
  - Anxiety [Unknown]

NARRATIVE: CASE EVENT DATE: 20190502
